FAERS Safety Report 5954848-2 (Version None)
Quarter: 2008Q4

REPORT INFORMATION
  Report Type: 
  Country: None (occurrence: None)
  Receive Date: 20081112
  Receipt Date: 20081028
  Transmission Date: 20090506
  Serious: Yes (Death)
  Sender: FDA-Public Use
  Company Number: 2008-04118

PATIENT
  Sex: 0

DRUGS (4)
  1. VELCADE [Suspect]
     Indication: MULTIPLE MYELOMA
  2. ZOMETA [Concomitant]
  3. AMIODARONE HCL [Concomitant]
  4. SIMVASTATIN [Concomitant]

REACTIONS (1)
  - DEATH [None]
